FAERS Safety Report 12114078 (Version 2)
Quarter: 2016Q2

REPORT INFORMATION
  Report Type: Report from Study
  Country: JP (occurrence: JP)
  Receive Date: 20160225
  Receipt Date: 20160406
  Transmission Date: 20160815
  Serious: Yes (Hospitalization)
  Sender: FDA-Public Use
  Company Number: JP-ASTELLAS-2010JP004037

PATIENT
  Age: 37 Year
  Sex: Female
  Weight: 58 kg

DRUGS (104)
  1. MEDROL [Suspect]
     Active Substance: METHYLPREDNISOLONE
     Route: 048
     Dates: start: 20120528, end: 20120624
  2. BONALON [Concomitant]
     Active Substance: ALENDRONATE SODIUM
     Indication: PROPHYLAXIS
     Dosage: 35 MG, EVERY WEEKLY
     Route: 048
     Dates: end: 20121105
  3. FERROMIA [Concomitant]
     Active Substance: FERROUS CITRATE
     Route: 048
     Dates: start: 20090709, end: 20091007
  4. CLARITH [Concomitant]
     Active Substance: CLARITHROMYCIN
     Indication: UPPER RESPIRATORY TRACT INFLAMMATION
     Route: 048
     Dates: start: 20090910, end: 20091007
  5. ALLELOCK [Concomitant]
     Active Substance: OLOPATADINE HYDROCHLORIDE
     Indication: DERMATITIS ATOPIC
     Route: 048
     Dates: start: 20121105, end: 20150621
  6. PREDNISOLONE. [Concomitant]
     Active Substance: PREDNISOLONE
     Indication: LUPUS NEPHRITIS
     Route: 048
     Dates: start: 20140310, end: 20140803
  7. QUETIAPINE. [Concomitant]
     Active Substance: QUETIAPINE
     Route: 048
     Dates: start: 20150821
  8. TACROLIMUS. [Suspect]
     Active Substance: TACROLIMUS
     Route: 048
     Dates: start: 20080714, end: 20120527
  9. TACROLIMUS. [Suspect]
     Active Substance: TACROLIMUS
     Route: 048
     Dates: start: 20120528, end: 20120624
  10. MEDROL [Suspect]
     Active Substance: METHYLPREDNISOLONE
     Route: 048
     Dates: start: 20080714, end: 20081126
  11. FERROMIA [Concomitant]
     Active Substance: FERROUS CITRATE
     Route: 048
     Dates: start: 20111003, end: 20120311
  12. ISODINE [Concomitant]
     Active Substance: POVIDONE-IODINE
     Indication: PROPHYLAXIS
     Dosage: UNK UNK, TWICE DAILY
     Route: 002
     Dates: start: 20111128, end: 20120624
  13. ATELEC [Concomitant]
     Active Substance: CILNIDIPINE
     Indication: HYPERTENSION
     Route: 048
     Dates: start: 20081127, end: 20090610
  14. OPISEZOL-CODEINE [Concomitant]
     Active Substance: HERBALS
     Indication: NASOPHARYNGITIS
     Route: 048
     Dates: start: 20100125, end: 20100131
  15. RINDERON VG [Concomitant]
     Active Substance: BETAMETHASONE VALERATE\GENTAMICIN SULFATE
     Indication: DERMATITIS ATOPIC
     Dosage: UNK UNK, TWICE DAILY
     Route: 061
     Dates: start: 20120924, end: 20121104
  16. BIO-THREE [Concomitant]
     Active Substance: HERBALS
     Indication: DIARRHOEA
     Route: 048
     Dates: start: 20120526, end: 20120528
  17. METHYLPREDNISOLONE. [Concomitant]
     Active Substance: METHYLPREDNISOLONE
     Route: 065
     Dates: start: 20130722, end: 20130724
  18. PREDNISOLONE. [Concomitant]
     Active Substance: PREDNISOLONE
     Route: 048
     Dates: start: 20150223, end: 20150329
  19. PREDNISOLONE. [Concomitant]
     Active Substance: PREDNISOLONE
     Route: 048
     Dates: start: 20150727, end: 20150731
  20. UBRETID [Concomitant]
     Active Substance: DISTIGMINE BROMIDE
     Indication: MENTAL IMPAIRMENT
     Route: 048
     Dates: start: 20140308
  21. TACROLIMUS. [Suspect]
     Active Substance: TACROLIMUS
     Route: 048
     Dates: start: 20120625, end: 20120729
  22. TERNELIN [Concomitant]
     Active Substance: TIZANIDINE
     Indication: MUSCULOSKELETAL STIFFNESS
     Route: 048
     Dates: start: 20090514, end: 20090708
  23. LOXONIN [Concomitant]
     Active Substance: LOXOPROFEN SODIUM
     Indication: ARTHRITIS
     Route: 048
     Dates: start: 20090827, end: 20090902
  24. MUCOSTA [Concomitant]
     Active Substance: REBAMIPIDE
     Indication: ARTHRITIS
     Route: 048
     Dates: start: 20090827, end: 20090902
  25. TAKEPRON [Concomitant]
     Active Substance: LANSOPRAZOLE
     Indication: PRODUCT USED FOR UNKNOWN INDICATION
     Route: 048
     Dates: start: 20110516, end: 20150621
  26. PREDNISOLONE. [Concomitant]
     Active Substance: PREDNISOLONE
     Route: 048
     Dates: start: 20140929, end: 20141109
  27. PANTOSIN [Concomitant]
     Active Substance: PANTETHINE
     Indication: CONSTIPATION
     Route: 048
     Dates: start: 20140630, end: 20140831
  28. BAKTAR [Concomitant]
     Active Substance: SULFAMETHOXAZOLE\TRIMETHOPRIM
     Indication: PROPHYLAXIS
     Route: 048
     Dates: start: 20140307, end: 20150621
  29. PREDONINE [Concomitant]
     Active Substance: PREDNISOLONE\PREDNISOLONE ACETATE\PREDNISOLONE SODIUM SUCCINATE
     Indication: CONJUNCTIVITIS ALLERGIC
     Dosage: UNK UNK, TWICE TO THRICE DAILY
     Route: 061
     Dates: start: 20141208, end: 20150209
  30. QUETIAPINE. [Concomitant]
     Active Substance: QUETIAPINE
     Route: 048
     Dates: start: 20150819, end: 20150820
  31. ZYPREXA ZYDIS [Concomitant]
     Active Substance: OLANZAPINE
     Route: 048
     Dates: start: 20150811, end: 20150818
  32. ENDOXAN                            /00021101/ [Concomitant]
     Active Substance: CYCLOPHOSPHAMIDE
     Indication: MENTAL IMPAIRMENT
     Route: 065
     Dates: start: 20140311, end: 20140311
  33. ENDOXAN                            /00021101/ [Concomitant]
     Active Substance: CYCLOPHOSPHAMIDE
     Indication: MENTAL IMPAIRMENT
     Route: 065
     Dates: start: 20140409, end: 20140409
  34. TACROLIMUS. [Suspect]
     Active Substance: TACROLIMUS
     Route: 048
     Dates: start: 20120827, end: 20130226
  35. TACROLIMUS. [Suspect]
     Active Substance: TACROLIMUS
     Route: 048
     Dates: start: 20140630
  36. MEDROL [Suspect]
     Active Substance: METHYLPREDNISOLONE
     Indication: LUPUS NEPHRITIS
     Route: 048
     Dates: end: 20080218
  37. DIOVAN [Concomitant]
     Active Substance: VALSARTAN
     Indication: HYPERTENSION
     Route: 048
     Dates: start: 20080218, end: 20090415
  38. ISODINE [Concomitant]
     Active Substance: POVIDONE-IODINE
     Indication: NASOPHARYNGITIS
     Dosage: UNK UNK, UNKNOWN FREQ.
     Route: 002
     Dates: start: 20081030, end: 20090610
  39. METHYLPREDNISOLONE. [Concomitant]
     Active Substance: METHYLPREDNISOLONE
     Indication: VISUAL FIELD DEFECT
     Route: 065
     Dates: start: 20130401, end: 20130401
  40. METHYLPREDNISOLONE. [Concomitant]
     Active Substance: METHYLPREDNISOLONE
     Route: 065
     Dates: start: 20130708, end: 20130710
  41. PREDNISOLONE. [Concomitant]
     Active Substance: PREDNISOLONE
     Route: 048
     Dates: start: 20150803, end: 20150826
  42. SENNOSIDE                          /00571901/ [Concomitant]
     Active Substance: SENNOSIDES A AND B
     Indication: CONSTIPATION
     Dosage: UNK UNK, AS NEEDED
     Route: 048
     Dates: start: 20140116
  43. LEVOFLOXACIN. [Concomitant]
     Active Substance: LEVOFLOXACIN
     Indication: CONJUNCTIVITIS ALLERGIC
     Dosage: UNK UNK, THRICE DAILY
     Route: 065
     Dates: start: 20141201, end: 20150209
  44. QUETIAPINE. [Concomitant]
     Active Substance: QUETIAPINE
     Indication: MENTAL IMPAIRMENT
     Route: 048
     Dates: end: 20150806
  45. ZYPREXA ZYDIS [Concomitant]
     Active Substance: OLANZAPINE
     Indication: MENTAL IMPAIRMENT
     Route: 048
     Dates: end: 20150810
  46. LUNESTA [Concomitant]
     Active Substance: ESZOPICLONE
     Indication: PRODUCT USED FOR UNKNOWN INDICATION
     Route: 048
  47. TACROLIMUS. [Suspect]
     Active Substance: TACROLIMUS
     Indication: LUPUS NEPHRITIS
     Route: 048
     Dates: start: 20071119, end: 20080518
  48. DIOVAN [Concomitant]
     Active Substance: VALSARTAN
     Route: 048
     Dates: start: 20120730, end: 20130128
  49. FERROMIA [Concomitant]
     Active Substance: FERROUS CITRATE
     Indication: IRON DEFICIENCY ANAEMIA
     Route: 048
     Dates: start: 20081030, end: 20090121
  50. LOXONIN [Concomitant]
     Active Substance: LOXOPROFEN SODIUM
     Indication: ARTHRITIS
     Dosage: UNK UNK, TWICE DAILY
     Route: 061
     Dates: start: 20090827, end: 20090902
  51. MUCODYNE [Concomitant]
     Active Substance: CARBOCYSTEINE
     Indication: NASOPHARYNGITIS
     Route: 048
     Dates: start: 20100125, end: 20100131
  52. METHYLPREDNISOLONE. [Concomitant]
     Active Substance: METHYLPREDNISOLONE
     Indication: MENTAL IMPAIRMENT
     Route: 065
     Dates: start: 20130405, end: 20130407
  53. METHYLPREDNISOLONE. [Concomitant]
     Active Substance: METHYLPREDNISOLONE
     Route: 065
     Dates: start: 20150731, end: 20150802
  54. PREDNISOLONE. [Concomitant]
     Active Substance: PREDNISOLONE
     Indication: MENTAL IMPAIRMENT
     Route: 048
     Dates: start: 20140804, end: 20140831
  55. PREDNISOLONE. [Concomitant]
     Active Substance: PREDNISOLONE
     Route: 048
     Dates: start: 20141110, end: 20150222
  56. PREDNISOLONE. [Concomitant]
     Active Substance: PREDNISOLONE
     Route: 048
     Dates: start: 20150622, end: 20150726
  57. PREDNISOLONE. [Concomitant]
     Active Substance: PREDNISOLONE
     Route: 048
     Dates: start: 20150827, end: 20150901
  58. MAGMITT [Concomitant]
     Active Substance: MAGNESIUM OXIDE
     Indication: CONSTIPATION
     Route: 048
     Dates: start: 20140630, end: 20140831
  59. SENNOSIDE                          /00571901/ [Concomitant]
     Active Substance: SENNOSIDES A AND B
     Indication: CONSTIPATION PROPHYLAXIS
  60. QUETIAPINE. [Concomitant]
     Active Substance: QUETIAPINE
     Route: 048
     Dates: start: 20150807, end: 20150818
  61. ZYPREXA ZYDIS [Concomitant]
     Active Substance: OLANZAPINE
     Route: 048
     Dates: start: 20150819
  62. TACROLIMUS. [Suspect]
     Active Substance: TACROLIMUS
     Route: 048
     Dates: start: 20120730, end: 20120826
  63. ZANTAC [Concomitant]
     Active Substance: RANITIDINE HYDROCHLORIDE
     Indication: PROPHYLAXIS
     Dosage: UNK UNK, UNKNOWN FREQ.
     Route: 048
     Dates: end: 20071216
  64. DIOVAN [Concomitant]
     Active Substance: VALSARTAN
     Indication: HYPERTENSION
     Route: 048
     Dates: start: 20090806, end: 20100516
  65. DIOVAN [Concomitant]
     Active Substance: VALSARTAN
     Route: 048
     Dates: start: 20101227, end: 201205
  66. CLARITH [Concomitant]
     Active Substance: CLARITHROMYCIN
     Indication: NASOPHARYNGITIS
     Route: 048
     Dates: start: 20100125, end: 20100131
  67. PREDNISOLONE. [Concomitant]
     Active Substance: PREDNISOLONE
     Route: 048
     Dates: start: 20140901, end: 20140928
  68. PREDNISOLONE. [Concomitant]
     Active Substance: PREDNISOLONE
     Route: 048
     Dates: start: 20150330, end: 20150621
  69. PREDNISOLONE. [Concomitant]
     Active Substance: PREDNISOLONE
     Route: 048
     Dates: start: 20150902
  70. RISPERDAL [Concomitant]
     Active Substance: RISPERIDONE
     Indication: MENTAL IMPAIRMENT
     Dosage: UNK UNK, AS NEEDED AT ANXIETY
     Route: 048
     Dates: start: 20140526, end: 20140831
  71. LAXOBERON [Concomitant]
     Active Substance: SODIUM PICOSULFATE
     Indication: CONSTIPATION
     Dosage: AS NEEDED, AT BEDTIME
     Route: 048
     Dates: start: 20140630, end: 20140831
  72. EBRANTIL                           /00631801/ [Concomitant]
     Active Substance: URAPIDIL
     Indication: MENTAL IMPAIRMENT
     Route: 048
     Dates: start: 20140308
  73. SULFAMETHOXAZOLE AND TRIMETHOPRIM [Concomitant]
     Active Substance: SULFAMETHOXAZOLE\TRIMETHOPRIM
     Indication: PROPHYLAXIS
     Route: 048
     Dates: start: 20150622
  74. NEXIUM [Concomitant]
     Active Substance: ESOMEPRAZOLE MAGNESIUM
     Indication: PRODUCT USED FOR UNKNOWN INDICATION
     Route: 048
     Dates: start: 20150622
  75. ENDOXAN                            /00021101/ [Concomitant]
     Active Substance: CYCLOPHOSPHAMIDE
     Route: 065
     Dates: start: 20150811, end: 20150811
  76. MEDROL [Suspect]
     Active Substance: METHYLPREDNISOLONE
     Route: 048
     Dates: start: 20080219, end: 20080713
  77. MEDROL [Suspect]
     Active Substance: METHYLPREDNISOLONE
     Route: 048
     Dates: start: 20081127, end: 20120525
  78. MEDROL [Suspect]
     Active Substance: METHYLPREDNISOLONE
     Route: 048
     Dates: start: 20120526, end: 20120527
  79. DIOVAN [Concomitant]
     Active Substance: VALSARTAN
     Indication: PROPHYLAXIS
     Route: 048
     Dates: start: 20090416, end: 20090708
  80. RESPLEN [Concomitant]
     Active Substance: EPRAZINONE
     Indication: UPPER RESPIRATORY TRACT INFLAMMATION
     Route: 048
     Dates: start: 20090910, end: 20091007
  81. RESPLEN [Concomitant]
     Active Substance: EPRAZINONE
     Indication: NASOPHARYNGITIS
     Route: 048
     Dates: start: 20100125, end: 20100131
  82. RINDERON VG [Concomitant]
     Active Substance: BETAMETHASONE VALERATE\GENTAMICIN SULFATE
     Indication: PROPHYLAXIS
     Dosage: UNK UNK, TWICE DAILY
     Route: 061
     Dates: start: 20130128, end: 20130320
  83. PURSENNID                          /00142207/ [Concomitant]
     Active Substance: SENNOSIDES A AND B
     Indication: CONSTIPATION
     Route: 048
     Dates: start: 20120827, end: 20121104
  84. KERATINAMIN [Concomitant]
     Active Substance: UREA
     Indication: DERMATITIS ATOPIC
     Dosage: UNK UNK, TWICE DAILY
     Route: 061
     Dates: start: 20120924, end: 20121104
  85. ALLELOCK [Concomitant]
     Active Substance: OLOPATADINE HYDROCHLORIDE
     Indication: PROPHYLAXIS
  86. METHYLPREDNISOLONE. [Concomitant]
     Active Substance: METHYLPREDNISOLONE
     Route: 065
     Dates: start: 20140221, end: 20140223
  87. METHYLPREDNISOLONE. [Concomitant]
     Active Substance: METHYLPREDNISOLONE
     Route: 065
     Dates: start: 20140228, end: 20140302
  88. UBRETID [Concomitant]
     Active Substance: DISTIGMINE BROMIDE
     Indication: PROPHYLAXIS
  89. AZUNOL                             /00620101/ [Concomitant]
     Indication: PROPHYLAXIS
     Dosage: UNK UNK, A FEW TIMES DAILY
     Route: 065
     Dates: start: 20140929
  90. TACROLIMUS. [Suspect]
     Active Substance: TACROLIMUS
     Route: 048
     Dates: start: 20080519, end: 20080713
  91. MEDROL [Suspect]
     Active Substance: METHYLPREDNISOLONE
     Route: 048
     Dates: start: 20120625, end: 20140309
  92. GASTER [Concomitant]
     Active Substance: FAMOTIDINE
     Indication: PROPHYLAXIS
     Route: 048
     Dates: start: 20071217, end: 20110515
  93. BONALON [Concomitant]
     Active Substance: ALENDRONATE SODIUM
     Route: 048
     Dates: start: 20140526
  94. SELBEX [Concomitant]
     Active Substance: TEPRENONE
     Indication: GASTRITIS
     Route: 048
     Dates: end: 20090610
  95. MUCODYNE [Concomitant]
     Active Substance: CARBOCYSTEINE
     Indication: UPPER RESPIRATORY TRACT INFLAMMATION
     Route: 048
     Dates: start: 20090910, end: 20091007
  96. RINDERON VG [Concomitant]
     Active Substance: BETAMETHASONE VALERATE\GENTAMICIN SULFATE
     Indication: RASH
     Dosage: UNK UNK, THRICE DAILY
     Route: 061
     Dates: start: 20101227
  97. METHYLPREDNISOLONE. [Concomitant]
     Active Substance: METHYLPREDNISOLONE
     Indication: LUPUS NEPHRITIS
     Route: 065
     Dates: start: 20130325, end: 20130327
  98. METHYLPREDNISOLONE. [Concomitant]
     Active Substance: METHYLPREDNISOLONE
     Indication: MENTAL IMPAIRMENT
     Route: 065
     Dates: start: 20130701, end: 20130703
  99. METHYLPREDNISOLONE. [Concomitant]
     Active Substance: METHYLPREDNISOLONE
     Route: 065
     Dates: start: 20130716, end: 20130718
  100. METHYLPREDNISOLONE. [Concomitant]
     Active Substance: METHYLPREDNISOLONE
     Route: 065
     Dates: start: 20140307, end: 20140309
  101. EBRANTIL                           /00631801/ [Concomitant]
     Active Substance: URAPIDIL
     Indication: PROPHYLAXIS
  102. PATANOL [Concomitant]
     Active Substance: OLOPATADINE HYDROCHLORIDE
     Indication: CONJUNCTIVITIS ALLERGIC
     Dosage: UNK UNK, FOURTH DAILY
     Route: 065
     Dates: start: 20141208, end: 20150209
  103. OLOPATADINE [Concomitant]
     Active Substance: OLOPATADINE
     Indication: PROPHYLAXIS
     Route: 048
     Dates: start: 20150622
  104. ENDOXAN                            /00021101/ [Concomitant]
     Active Substance: CYCLOPHOSPHAMIDE
     Route: 065
     Dates: start: 20150916, end: 20150916

REACTIONS (14)
  - Constipation [Recovered/Resolved]
  - Constipation [Recovering/Resolving]
  - Nasopharyngitis [Recovered/Resolved]
  - Rash [Recovered/Resolved]
  - Mental impairment [Recovering/Resolving]
  - Conjunctivitis allergic [Recovered/Resolved]
  - Mental impairment [Recovering/Resolving]
  - Arthritis [Recovered/Resolved]
  - Diarrhoea [Recovered/Resolved]
  - Visual field defect [Not Recovered/Not Resolved]
  - Musculoskeletal stiffness [Recovered/Resolved]
  - Hypertension [Recovering/Resolving]
  - Upper respiratory tract inflammation [Recovered/Resolved]
  - Dermatitis atopic [Recovering/Resolving]

NARRATIVE: CASE EVENT DATE: 20080218
